FAERS Safety Report 14033357 (Version 1)
Quarter: 2017Q4

REPORT INFORMATION
  Report Type: Spontaneous
  Country: US (occurrence: US)
  Receive Date: 20171002
  Receipt Date: 20171002
  Transmission Date: 20180321
  Serious: Yes (Other)
  Sender: FDA-Public Use
  Company Number: None

PATIENT
  Age: 63 Year
  Sex: Male

DRUGS (1)
  1. PREDNISOLONE ACETATE. [Suspect]
     Active Substance: PREDNISOLONE ACETATE
     Indication: TRANSPLANT FAILURE
     Route: 047
     Dates: start: 20170701, end: 20170724

REACTIONS (1)
  - Transplant rejection [None]

NARRATIVE: CASE EVENT DATE: 20170724
